FAERS Safety Report 24567854 (Version 2)
Quarter: 2024Q4

REPORT INFORMATION
  Report Type: Report from Study
  Country: US (occurrence: US)
  Receive Date: 20241031
  Receipt Date: 20241108
  Transmission Date: 20250114
  Serious: Yes (Other)
  Sender: ROCHE
  Company Number: US-ROCHE-10000117670

PATIENT
  Age: 65 Year
  Sex: Female

DRUGS (2)
  1. ROZLYTREK [Suspect]
     Active Substance: ENTRECTINIB
     Indication: Malignant melanoma
     Dosage: TAKE 3 CAPSULE(S) BY MOUTH EVERY DAY
     Route: 048
  2. ROZLYTREK [Suspect]
     Active Substance: ENTRECTINIB
     Indication: Chemotherapy

REACTIONS (4)
  - Feeling abnormal [Unknown]
  - Neoplasm malignant [Unknown]
  - Cerebral disorder [Unknown]
  - Off label use [Unknown]
